FAERS Safety Report 9419966 (Version 1)
Quarter: 2013Q3

REPORT INFORMATION
  Report Type: Spontaneous
  Country: US (occurrence: None)
  Receive Date: 20130724
  Receipt Date: 20130724
  Transmission Date: 20140515
  Serious: Yes (Life-Threatening)
  Sender: FDA-Public Use
  Company Number: None

PATIENT
  Age: 56 Year
  Sex: Female
  Weight: 77.11 kg

DRUGS (1)
  1. ESCITALOPRAM 20MG [Suspect]
     Indication: MENOPAUSAL SYMPTOMS
     Dates: start: 20130603, end: 20130719

REACTIONS (7)
  - Feeling abnormal [None]
  - Depression [None]
  - Speech disorder [None]
  - Pain [None]
  - Fatigue [None]
  - Suicidal ideation [None]
  - Impaired work ability [None]
